FAERS Safety Report 17177353 (Version 1)
Quarter: 2019Q4

REPORT INFORMATION
  Report Type: Spontaneous
  Country: US (occurrence: US)
  Receive Date: 20191219
  Receipt Date: 20191219
  Transmission Date: 20200122
  Serious: Yes (Other)
  Sender: FDA-Public Use
  Company Number: US-COOPERSURGICAL, INC.-US-2018CPS034135

PATIENT

DRUGS (1)
  1. PARAGARD T 380A [Suspect]
     Active Substance: COPPER
     Indication: CONTRACEPTION
     Dosage: UNK
     Route: 015
     Dates: start: 20181218

REACTIONS (8)
  - Muscle spasms [Recovered/Resolved]
  - Restlessness [Recovered/Resolved]
  - Pollakiuria [Recovered/Resolved]
  - Nausea [Recovered/Resolved]
  - Discomfort [Recovered/Resolved]
  - Vaginal haemorrhage [Recovered/Resolved]
  - Diarrhoea [Recovered/Resolved]
  - Procedural haemorrhage [Recovered/Resolved]

NARRATIVE: CASE EVENT DATE: 20181218
